FAERS Safety Report 19881492 (Version 1)
Quarter: 2021Q3

REPORT INFORMATION
  Report Type: Spontaneous
  Country: RU (occurrence: RU)
  Receive Date: 20210924
  Receipt Date: 20210924
  Transmission Date: 20211014
  Serious: Yes (Hospitalization)
  Sender: FDA-Public Use
  Company Number: NVSC2021RU213704

PATIENT
  Age: 61 Year
  Sex: Female
  Weight: 72 kg

DRUGS (4)
  1. AMOKSIKLAV [Suspect]
     Active Substance: AMOXICILLIN\CLAVULANATE POTASSIUM
     Indication: ANTIBIOTIC THERAPY
     Dosage: 1000 MG, BID (875 MG/125 MG 1 TABLET  2 TIMES PER DAY)
     Route: 048
     Dates: start: 20210831, end: 20210901
  2. KLACID [Concomitant]
     Active Substance: CLARITHROMYCIN
     Indication: ANTIBIOTIC THERAPY
     Dosage: 500 MG, BID
     Route: 048
     Dates: start: 20210831, end: 20210903
  3. DE?NOL [Concomitant]
     Indication: ANTIBIOTIC THERAPY
     Dosage: 120 MG, BID
     Route: 048
     Dates: start: 20210831, end: 20210903
  4. NEXIUM [Concomitant]
     Active Substance: ESOMEPRAZOLE MAGNESIUM
     Indication: ANTIBIOTIC THERAPY
     Dosage: 20 MG, BID
     Route: 048
     Dates: start: 20210831, end: 20210903

REACTIONS (4)
  - Rash papular [Recovered/Resolved]
  - Rash macular [Recovered/Resolved]
  - Dyspnoea [Recovered/Resolved]
  - Pruritus [Recovered/Resolved]

NARRATIVE: CASE EVENT DATE: 20210901
